FAERS Safety Report 7182464-6 (Version None)
Quarter: 2010Q4

REPORT INFORMATION
  Report Type: 
  Country: None (occurrence: None)
  Receive Date: 20101221
  Receipt Date: 20100513
  Transmission Date: 20110411
  Serious: No
  Sender: FDA-Public Use
  Company Number: US-AMGEN-KDL412364

PATIENT

DRUGS (2)
  1. ENBREL [Suspect]
     Indication: AUTOIMMUNE DISORDER
     Dosage: 50 MG, QWK
     Route: 058
     Dates: start: 20100111
  2. WARFARIN SODIUM [Concomitant]

REACTIONS (5)
  - CATARACT [None]
  - CRYOPYRIN ASSOCIATED PERIODIC SYNDROME [None]
  - INCREASED TENDENCY TO BRUISE [None]
  - INJECTION SITE HAEMATOMA [None]
  - INJECTION SITE HAEMORRHAGE [None]
